FAERS Safety Report 5408814-6 (Version None)
Quarter: 2007Q3

REPORT INFORMATION
  Report Type: 
  Country: None (occurrence: None)
  Receive Date: 20070808
  Receipt Date: 20070803
  Transmission Date: 20080115
  Serious: Yes (Other)
  Sender: FDA-Public Use
  Company Number: US-ASTRAZENECA-2007UW15604

PATIENT
  Age: 19340 Day
  Sex: Male
  Weight: 110 kg

DRUGS (9)
  1. SEROQUEL [Suspect]
     Route: 048
  2. SEROQUEL [Suspect]
     Route: 048
  3. SEROQUEL [Suspect]
     Route: 048
     Dates: start: 20070319
  4. CYMBALTA [Concomitant]
  5. GLIMEPIRIDE [Concomitant]
  6. AMBIEN CR [Concomitant]
  7. CLONAZEPAM [Concomitant]
  8. REGLAN [Concomitant]
  9. ASPIRIN [Concomitant]

REACTIONS (1)
  - RENAL FAILURE ACUTE [None]
